FAERS Safety Report 13894421 (Version 1)
Quarter: 2017Q3

REPORT INFORMATION
  Report Type: Spontaneous
  Country: US (occurrence: US)
  Receive Date: 20170816
  Receipt Date: 20170816
  Transmission Date: 20171127
  Serious: Yes (Other)
  Sender: FDA-Public Use
  Company Number: None

PATIENT
  Age: 71 Year
  Sex: Female
  Weight: 58.9 kg

DRUGS (1)
  1. NICOTINE. [Suspect]
     Active Substance: NICOTINE
     Dosage: ?          OTHER FREQUENCY:ONCE;?
     Route: 062
     Dates: start: 20170812, end: 20170812

REACTIONS (4)
  - Swelling [None]
  - Swollen tongue [None]
  - Pharyngeal oedema [None]
  - Swelling face [None]

NARRATIVE: CASE EVENT DATE: 20170812
